FAERS Safety Report 10680806 (Version 3)
Quarter: 2015Q1

REPORT INFORMATION
  Report Type: Spontaneous
  Country: US (occurrence: US)
  Receive Date: 20141229
  Receipt Date: 20150206
  Transmission Date: 20150720
  Serious: Yes (Other)
  Sender: FDA-Public Use
  Company Number: US-SA-2014SA177799

PATIENT
  Age: 56 Year
  Sex: Female
  Weight: 127.01 kg

DRUGS (16)
  1. LANTUS [Suspect]
     Active Substance: INSULIN GLARGINE
     Indication: DIABETES MELLITUS
     Dosage: DOSE:43 UNIT(S)
     Route: 065
     Dates: start: 1998
  2. NASACORT [Concomitant]
     Active Substance: TRIAMCINOLONE ACETONIDE
  3. POTASSIUM CHLORIDE. [Concomitant]
     Active Substance: POTASSIUM CHLORIDE
  4. ENBREL [Concomitant]
     Active Substance: ETANERCEPT
  5. LISINOPRIL. [Concomitant]
     Active Substance: LISINOPRIL
  6. FUROSEMIDE. [Concomitant]
     Active Substance: FUROSEMIDE
  7. TAZTIA XL [Concomitant]
  8. AMLODIPINE BESILATE [Concomitant]
     Active Substance: AMLODIPINE BESYLATE
  9. GLIPIZIDE. [Concomitant]
     Active Substance: GLIPIZIDE
  10. PRADAXA [Concomitant]
     Active Substance: DABIGATRAN ETEXILATE MESYLATE
  11. LANTUS [Suspect]
     Active Substance: INSULIN GLARGINE
     Indication: DIABETES MELLITUS
     Dosage: DOSE:42 UNIT(S)
     Route: 065
  12. GABAPENTIN. [Concomitant]
     Active Substance: GABAPENTIN
  13. LOVASTATIN. [Concomitant]
     Active Substance: LOVASTATIN
  14. LEVOTHYROXINE [Concomitant]
     Active Substance: LEVOTHYROXINE
  15. FAMOTIDINE. [Concomitant]
     Active Substance: FAMOTIDINE
  16. SOTALOL HYDROCHLORIDE. [Concomitant]
     Active Substance: SOTALOL HYDROCHLORIDE

REACTIONS (2)
  - Salivary gland cancer [Unknown]
  - Cataract operation [Unknown]

NARRATIVE: CASE EVENT DATE: 2009
